FAERS Safety Report 15408236 (Version 1)
Quarter: 2018Q3

REPORT INFORMATION
  Report Type: Spontaneous
  Country: US (occurrence: US)
  Receive Date: 20180920
  Receipt Date: 20180920
  Transmission Date: 20181010
  Serious: No
  Sender: FDA-Public Use
  Company Number: US-PERRIGO-18US002072

PATIENT
  Age: 17 Year
  Sex: Female
  Weight: 48.53 kg

DRUGS (4)
  1. LEVONORGESTREL. [Suspect]
     Active Substance: LEVONORGESTREL
     Indication: CONTRACEPTION
     Dosage: 1.5 MG, SINGLE
     Route: 048
     Dates: start: 20180213, end: 20180213
  2. PLAN B [Suspect]
     Active Substance: LEVONORGESTREL
     Indication: PRODUCT USED FOR UNKNOWN INDICATION
     Dosage: UNKNOWN, SINGLE
     Route: 048
     Dates: start: 20180215, end: 20180215
  3. TERANOL [Concomitant]
     Indication: SEIZURE
     Dosage: 300 MG, UNKNOWN
     Route: 065
     Dates: start: 201801
  4. TERANOL [Concomitant]
     Indication: BIPOLAR DISORDER

REACTIONS (8)
  - Vomiting [Recovered/Resolved]
  - Menstruation delayed [Unknown]
  - Dizziness [Not Recovered/Not Resolved]
  - Thirst [Not Recovered/Not Resolved]
  - Headache [Not Recovered/Not Resolved]
  - Pollakiuria [Not Recovered/Not Resolved]
  - Hunger [Not Recovered/Not Resolved]
  - Nausea [Not Recovered/Not Resolved]

NARRATIVE: CASE EVENT DATE: 201802
